FAERS Safety Report 8419068-0 (Version None)
Quarter: 2012Q2

REPORT INFORMATION
  Report Type: 
  Country: None (occurrence: None)
  Receive Date: 20120607
  Receipt Date: 20120605
  Transmission Date: 20120825
  Serious: Yes (Death, Hospitalization)
  Sender: FDA-Public Use
  Company Number: PHHO2012US008459

PATIENT
  Sex: Female
  Weight: 150.55 kg

DRUGS (4)
  1. CARBOPLATIN [Suspect]
  2. TAXOL [Suspect]
     Indication: METASTATIC MALIGNANT MELANOMA
     Dosage: 80 MG/M2, UNK
     Route: 042
     Dates: start: 20120518, end: 20120518
  3. AFINITOR [Suspect]
     Indication: METASTATIC MALIGNANT MELANOMA
     Dosage: 5 MG, QW3 (M, W, F) ALL 4 WEEKS, REPEAT Q28 DAYS
     Route: 048
     Dates: start: 20120521, end: 20120525
  4. BEVACIZUMAB [Suspect]
     Indication: METASTATIC MALIGNANT MELANOMA
     Dosage: 10 MG/KG, QD
     Route: 042
     Dates: start: 20120518, end: 20120518

REACTIONS (5)
  - NEUTROPENIA [None]
  - DIARRHOEA [None]
  - SEPSIS [None]
  - RENAL FAILURE ACUTE [None]
  - THROMBOCYTOPENIA [None]
